FAERS Safety Report 15771826 (Version 1)
Quarter: 2018Q4

REPORT INFORMATION
  Report Type: Spontaneous
  Country: US (occurrence: US)
  Receive Date: 20181228
  Receipt Date: 20181228
  Transmission Date: 20190205
  Serious: Yes (Other)
  Sender: FDA-Public Use
  Company Number: US-009507513-1812USA009965

PATIENT
  Age: 58 Year
  Sex: Male

DRUGS (1)
  1. TEMODAR [Suspect]
     Active Substance: TEMOZOLOMIDE
     Indication: ACRAL LENTIGINOUS MELANOMA
     Dosage: 175 MILLIGRAM/SQ. METER, ONE CYCLE
     Route: 048

REACTIONS (1)
  - Pancytopenia [Unknown]
